FAERS Safety Report 13587173 (Version 1)
Quarter: 2017Q2

REPORT INFORMATION
  Report Type: Spontaneous
  Country: RU (occurrence: RU)
  Receive Date: 20170526
  Receipt Date: 20170526
  Transmission Date: 20170830
  Serious: Yes (Other)
  Sender: FDA-Public Use
  Company Number: RU-SA-2017SA092802

PATIENT
  Age: 22 Year
  Sex: Female

DRUGS (11)
  1. CLEXANE [Suspect]
     Active Substance: ENOXAPARIN SODIUM
     Dosage: STARTED ON WEEK 8 TILL THE END OF WEEK 10 (DAY 70)
     Route: 065
  2. PREDNISONE. [Suspect]
     Active Substance: PREDNISONE
     Route: 065
  3. HEPARIN [Suspect]
     Active Substance: HEPARIN SODIUM
     Dosage: DAYS 44-46 DOSE:500 UNIT(S)
     Route: 065
  4. DASATINIB [Suspect]
     Active Substance: DASATINIB
     Route: 065
  5. BORTEZOMIB [Suspect]
     Active Substance: BORTEZOMIB
     Route: 065
  6. IMATINIB MESILATE [Suspect]
     Active Substance: IMATINIB MESYLATE
     Route: 065
  7. HEPARIN [Suspect]
     Active Substance: HEPARIN SODIUM
     Dosage: DAYS 47-54 STARTED ON WEEK 7, STOPPED ON WEEK 8 DOSE:750 UNIT(S)
     Route: 065
  8. BLINATUMOMAB [Suspect]
     Active Substance: BLINATUMOMAB
     Route: 065
  9. PONATINIB [Suspect]
     Active Substance: PONATINIB
     Route: 065
  10. IMATINIB MESILATE [Suspect]
     Active Substance: IMATINIB MESYLATE
     Dosage: FROM THE BEGINNING OF WEEK 7 (DAY44) TILL THE END OF WEEK 10 (DAY 70); UNKNOWN
     Route: 065
  11. NILOTINIB [Suspect]
     Active Substance: NILOTINIB
     Route: 065

REACTIONS (10)
  - Toxicity to various agents [Unknown]
  - Subarachnoid haemorrhage [Unknown]
  - Neurological symptom [Unknown]
  - Subdural haematoma [Unknown]
  - Refractory cancer [Unknown]
  - Asthenia [Unknown]
  - Superior sagittal sinus thrombosis [Unknown]
  - Headache [Unknown]
  - Abdominal pain upper [Unknown]
  - Hypoaesthesia [Unknown]

NARRATIVE: CASE EVENT DATE: 201510
